FAERS Safety Report 6231501-1 (Version None)
Quarter: 2009Q2

REPORT INFORMATION
  Report Type: 
  Country: None (occurrence: None)
  Receive Date: 20090616
  Receipt Date: 20090611
  Transmission Date: 20091009
  Serious: Yes (Hospitalization)
  Sender: FDA-Public Use
  Company Number: B0510357A

PATIENT
  Sex: Female

DRUGS (5)
  1. AUGMENTIN '125' [Suspect]
     Dosage: 500MG TWICE PER DAY
     Route: 048
     Dates: start: 20070915
  2. NEXIUM [Concomitant]
     Dosage: 20MG PER DAY
     Route: 048
  3. SOTALEX [Concomitant]
     Dosage: 80MG PER DAY
     Route: 048
  4. FLUDEX [Concomitant]
     Route: 048
  5. LEVOTHYROXINE SODIUM [Concomitant]
     Indication: HYPOTHYROIDISM
     Dosage: 100MCG PER DAY
     Route: 048

REACTIONS (9)
  - CONJUNCTIVITIS [None]
  - ERYTHEMA [None]
  - HYPERGAMMAGLOBULINAEMIA [None]
  - HYPOKALAEMIA [None]
  - LYMPHOPENIA [None]
  - PROTEINURIA [None]
  - RASH MACULAR [None]
  - THERMAL BURN [None]
  - TOXIC SKIN ERUPTION [None]
